FAERS Safety Report 9805741 (Version 1)
Quarter: 2014Q1

REPORT INFORMATION
  Report Type: Spontaneous
  Country: US (occurrence: None)
  Receive Date: 20140108
  Receipt Date: 20140108
  Transmission Date: 20141002
  Serious: No
  Sender: FDA-Public Use
  Company Number: None

PATIENT
  Age: 66 Year
  Sex: Male
  Weight: 78.7 kg

DRUGS (1)
  1. LEUPROLIDE [Suspect]
     Indication: BENIGN PROSTATIC HYPERPLASIA
     Route: 058
     Dates: start: 20130823, end: 20130826

REACTIONS (6)
  - Hypotension [None]
  - Nausea [None]
  - Vomiting [None]
  - Dry mouth [None]
  - Hyperhidrosis [None]
  - Asthenia [None]
